FAERS Safety Report 9937651 (Version 2)
Quarter: 2014Q1

REPORT INFORMATION
  Report Type: Spontaneous
  Country: AE (occurrence: AE)
  Receive Date: 20140303
  Receipt Date: 20140317
  Transmission Date: 20141002
  Serious: Yes (Hospitalization)
  Sender: FDA-Public Use
  Company Number: AE-AMGEN-ARESP2014014851

PATIENT
  Age: 52 Year
  Sex: 0

DRUGS (4)
  1. ENBREL [Suspect]
     Indication: RHEUMATOID ARTHRITIS
     Dosage: 50MG, ONCE PER WEEK
     Route: 058
     Dates: start: 201202
  2. METHOTREXATE [Concomitant]
     Dosage: 2.5 MG, 3 TABS ONCE PER WEEK
  3. ALFACALCIDOL [Concomitant]
     Dosage: 1 MCG, 1X/DAY
  4. FOLIC ACID [Concomitant]
     Dosage: 5MG TABLET (2 TABLETS PER WEEK)

REACTIONS (3)
  - Arthropathy [Unknown]
  - Incision site pain [Unknown]
  - Post procedural swelling [Unknown]
